FAERS Safety Report 5279925-3 (Version None)
Quarter: 2007Q1

REPORT INFORMATION
  Report Type: 
  Country: None (occurrence: None)
  Receive Date: 20070326
  Receipt Date: 20070326
  Transmission Date: 20070707
  Serious: Yes (Other)
  Sender: FDA-Public Use
  Company Number: None

PATIENT
  Age: 50 Year
  Sex: Female
  Weight: 50.3493 kg

DRUGS (1)
  1. ROCEPHIN [Suspect]
     Indication: INFECTION
     Dosage: 1 INJECTION
     Dates: start: 20061219, end: 20061219

REACTIONS (7)
  - ACTIVITIES OF DAILY LIVING IMPAIRED [None]
  - DYSKINESIA [None]
  - FATIGUE [None]
  - MIGRAINE [None]
  - MUSCLE SPASMS [None]
  - MUSCLE TWITCHING [None]
  - PRURITUS [None]
